FAERS Safety Report 6869226-1 (Version None)
Quarter: 2010Q3

REPORT INFORMATION
  Report Type: 
  Country: None (occurrence: None)
  Receive Date: 20100722
  Receipt Date: 20080710
  Transmission Date: 20110219
  Serious: Yes (Other)
  Sender: FDA-Public Use
  Company Number: US-PFIZER INC-2008059438

PATIENT
  Sex: Male
  Weight: 69.4 kg

DRUGS (1)
  1. CHANTIX [Suspect]
     Indication: SMOKING CESSATION THERAPY
     Dates: start: 20080228, end: 20080428

REACTIONS (3)
  - DEPRESSED MOOD [None]
  - IMPATIENCE [None]
  - SUICIDAL IDEATION [None]
